FAERS Safety Report 4964883-9 (Version None)
Quarter: 2006Q2

REPORT INFORMATION
  Report Type: 
  Country: None (occurrence: None)
  Receive Date: 20060403
  Receipt Date: 20060320
  Transmission Date: 20061013
  Serious: Yes (Hospitalization)
  Sender: FDA-Public Use
  Company Number: 2006RR-01827

PATIENT
  Age: 64 Year
  Sex: Male

DRUGS (3)
  1. ALITIZIDE-SPIRONOLACTONE [Suspect]
     Indication: ASCITES
     Dosage: 25 MG, BID
     Dates: start: 19940411, end: 20001002
  2. FRUSEMIDE (FUROSEMIIDE [Suspect]
     Indication: ASCITES
     Dosage: 40 MG, BID
     Dates: start: 19940411
  3. CONFIT (VERAPAMIL 25 MG, TRIAMTERENE 50 MG, HYDROCHLOROTHIAZIDE 160 MG [Suspect]
     Dosage: 50 MG, BID
     Dates: start: 20001002

REACTIONS (13)
  - ANAEMIA MEGALOBLASTIC [None]
  - ANISOCYTOSIS [None]
  - BLOOD BILIRUBIN INCREASED [None]
  - BLOOD LACTIC ACID INCREASED [None]
  - ERYTHEMA [None]
  - GYNAECOMASTIA [None]
  - JAUNDICE [None]
  - MARROW HYPERPLASIA [None]
  - PAIN [None]
  - PALLOR [None]
  - PANCYTOPENIA [None]
  - POIKILOCYTOSIS [None]
  - SPIDER NAEVUS [None]
